FAERS Safety Report 7780714-6 (Version None)
Quarter: 2011Q3

REPORT INFORMATION
  Report Type: 
  Country: None (occurrence: None)
  Receive Date: 20110927
  Receipt Date: 20110510
  Transmission Date: 20111222
  Serious: No
  Sender: FDA-Public Use
  Company Number: US-BRISTOL-MYERS SQUIBB COMPANY-15698111

PATIENT
  Age: 47 Year
  Sex: Male

DRUGS (1)
  1. AVAPRO [Suspect]
     Indication: HYPERTENSION
     Route: 048
     Dates: start: 20110427, end: 20110101

REACTIONS (2)
  - MUSCLE SPASMS [None]
  - DYSGEUSIA [None]
